FAERS Safety Report 8572108-0 (Version None)
Quarter: 2012Q3

REPORT INFORMATION
  Report Type: 
  Country: None (occurrence: None)
  Receive Date: 20120806
  Receipt Date: 20120725
  Transmission Date: 20120928
  Serious: Yes (Hospitalization)
  Sender: FDA-Public Use
  Company Number: JP-NAPPMUNDI-MAG-2012-0002238

PATIENT
  Age: 75 Year
  Sex: Female

DRUGS (6)
  1. HYPEN                              /00613801/ [Concomitant]
     Indication: CANCER PAIN
     Dosage: 400 MG, DAILY
     Route: 048
     Dates: start: 20050424, end: 20060523
  2. LENDORMIN [Concomitant]
     Indication: INSOMNIA
     Dosage: 0.25 MG, DAILY
     Route: 048
     Dates: start: 20050610, end: 20060519
  3. OXYCODONE HCL [Suspect]
     Indication: CANCER PAIN
     Dosage: 10 MG, DAILY
     Route: 048
     Dates: start: 20060516, end: 20060519
  4. OXYCODONE HCL [Suspect]
     Dosage: 10 MG, DAILY
     Route: 048
     Dates: start: 20060426, end: 20060505
  5. FOIPAN [Concomitant]
     Indication: DYSPEPSIA
     Dosage: UNK
     Dates: start: 20051111, end: 20060429
  6. NOVAMIN                            /00013301/ [Concomitant]
     Indication: PROPHYLAXIS OF NAUSEA AND VOMITING
     Dosage: 15 MG, DAILY
     Route: 048
     Dates: start: 20060426, end: 20060519

REACTIONS (3)
  - SOMNOLENCE [None]
  - ANURIA [None]
  - DELIRIUM [None]
